FAERS Safety Report 9197437 (Version 1)
Quarter: 2013Q1

REPORT INFORMATION
  Report Type: Report from Study
  Country: US (occurrence: US)
  Receive Date: 20130328
  Receipt Date: 20130328
  Transmission Date: 20140127
  Serious: Yes (Hospitalization)
  Sender: FDA-Public Use
  Company Number: US-JNJFOC-20130314174

PATIENT
  Sex: Male
  Weight: 83.46 kg

DRUGS (11)
  1. STELARA [Suspect]
     Indication: PSORIASIS
     Route: 058
     Dates: start: 2007, end: 2012
  2. ISOSORBIDE [Concomitant]
     Route: 048
  3. TRAZODONE [Concomitant]
     Route: 048
  4. FUROSEMIDE [Concomitant]
     Route: 048
  5. METOPROLOL [Concomitant]
     Route: 048
  6. SIMVASTATIN [Concomitant]
     Indication: BLOOD CHOLESTEROL
     Route: 048
  7. ASPIRIN [Concomitant]
     Route: 048
  8. LANSOPRAZOLE [Concomitant]
     Route: 048
  9. DONEPEZIL [Concomitant]
     Route: 048
  10. CARDIZEM [Concomitant]
     Route: 048
  11. TAMSULOSIN [Concomitant]
     Route: 048

REACTIONS (3)
  - Benign neoplasm [Recovered/Resolved]
  - Blood potassium increased [Unknown]
  - Inappropriate schedule of drug administration [Recovered/Resolved]
